FAERS Safety Report 10264340 (Version 1)
Quarter: 2014Q2

REPORT INFORMATION
  Report Type: Spontaneous
  Country: US (occurrence: None)
  Receive Date: 20140624
  Receipt Date: 20140624
  Transmission Date: 20141212
  Serious: Yes (Disabling)
  Sender: FDA-Public Use
  Company Number: None

PATIENT
  Age: 39 Year
  Sex: Female
  Weight: 90.72 kg

DRUGS (8)
  1. BOTOX [Suspect]
     Indication: MIGRAINE
     Dosage: EVERY 3 MONTHS?HEAD/NECK INJECTIONS
     Dates: start: 201312, end: 20140520
  2. XANAX [Concomitant]
  3. PROTONIC [Concomitant]
  4. TOPAMAX [Concomitant]
  5. VERAPAMIL [Concomitant]
  6. WELLBUTRIN [Concomitant]
  7. PROMETHAZINE [Concomitant]
  8. EXCEDRINE MIGRAINE [Concomitant]

REACTIONS (6)
  - Vomiting [None]
  - Diarrhoea [None]
  - Vertigo [None]
  - Malaise [None]
  - Pain in extremity [None]
  - Thinking abnormal [None]
